FAERS Safety Report 23351279 (Version 1)
Quarter: 2023Q4

REPORT INFORMATION
  Report Type: Spontaneous
  Country: US (occurrence: None)
  Receive Date: 20231229
  Receipt Date: 20231229
  Transmission Date: 20240109
  Serious: Yes (Hospitalization)
  Sender: FDA-Public Use
  Company Number: None

PATIENT
  Age: 77 Year
  Sex: Female
  Weight: 90.1 kg

DRUGS (1)
  1. EVEROLIMUS [Suspect]
     Active Substance: EVEROLIMUS

REACTIONS (4)
  - Urinary tract infection [None]
  - Calculus urinary [None]
  - Urinary tract obstruction [None]
  - Pleural effusion [None]

NARRATIVE: CASE EVENT DATE: 20231224
